FAERS Safety Report 5827992-8 (Version None)
Quarter: 2008Q3

REPORT INFORMATION
  Report Type: 
  Country: None (occurrence: None)
  Receive Date: 20080728
  Receipt Date: 20080702
  Transmission Date: 20090109
  Serious: Yes (Other)
  Sender: FDA-Public Use
  Company Number: US-1166792

PATIENT
  Sex: Female

DRUGS (2)
  1. TRAVATAN Z [Suspect]
     Indication: GLAUCOMA
     Dosage: (OPHTHALMIC)
     Route: 047
  2. TRAVATAN [Suspect]
     Dosage: (OPHTHALMIC)
     Route: 047

REACTIONS (4)
  - CONDITION AGGRAVATED [None]
  - DRUG DISPENSING ERROR [None]
  - DRY EYE [None]
  - EYE DISORDER [None]
